FAERS Safety Report 10047487 (Version 1)
Quarter: 2014Q1

REPORT INFORMATION
  Report Type: Spontaneous
  Country: US (occurrence: None)
  Receive Date: 20140327
  Receipt Date: 20140327
  Transmission Date: 20141002
  Serious: Yes (Other)
  Sender: FDA-Public Use
  Company Number: 2014AP002271

PATIENT
  Age: 22 Year
  Sex: Female

DRUGS (12)
  1. AZITHROMYCIN [Suspect]
     Indication: MYCOBACTERIUM AVIUM COMPLEX INFECTION
  2. MOXIFLOXACIN [Suspect]
     Indication: MYCOBACTERIUM AVIUM COMPLEX INFECTION
  3. ETHAMBUTOL [Suspect]
     Indication: MYCOBACTERIUM AVIUM COMPLEX INFECTION
  4. RIFABUTIN [Suspect]
     Indication: MYCOBACTERIUM AVIUM COMPLEX INFECTION
  5. DAPSONE [Suspect]
     Indication: MYCOBACTERIUM AVIUM COMPLEX INFECTION
  6. LEVOFLOXACIN [Concomitant]
  7. EMTRICITABINE [Concomitant]
  8. RALTEGRAVIR [Concomitant]
  9. ETRAVIRINE [Concomitant]
  10. COTRIMOXAZOLE [Concomitant]
  11. FLUCONAZOLE [Concomitant]
  12. ACICLOVIR [Concomitant]

REACTIONS (1)
  - Pancytopenia [None]
